FAERS Safety Report 4428108-5 (Version None)
Quarter: 2004Q3

REPORT INFORMATION
  Report Type: 
  Country: None (occurrence: None)
  Receive Date: 20040726
  Receipt Date: 20040507
  Transmission Date: 20050211
  Serious: No
  Sender: FDA-Public Use
  Company Number: USA030843852

PATIENT
  Age: 84 Year
  Sex: Female
  Weight: 57 kg

DRUGS (6)
  1. FORTEO [Suspect]
     Indication: OSTEOPOROSIS
     Dosage: 20 UG 1 DAY
     Dates: start: 20030301
  2. ALBUTEROL [Concomitant]
  3. ADVAIR DISKUS 100/50 [Concomitant]
  4. CALTRATE 600 PLUS VITAMIN D [Concomitant]
  5. CALCIUM [Concomitant]
  6. CENTRUM [Concomitant]

REACTIONS (4)
  - ALOPECIA [None]
  - ASTHENIA [None]
  - BALANCE DISORDER [None]
  - MUSCLE CRAMP [None]
